FAERS Safety Report 9867513 (Version 1)
Quarter: 2014Q1

REPORT INFORMATION
  Report Type: Spontaneous
  Country: US (occurrence: None)
  Receive Date: 20140131
  Receipt Date: 20140131
  Transmission Date: 20141002
  Serious: Yes (Death, Hospitalization)
  Sender: FDA-Public Use
  Company Number: NSR_01404_2014

PATIENT
  Age: 33 Year
  Sex: Female

DRUGS (7)
  1. HYDROXYZINE [Suspect]
     Indication: PRODUCT USED FOR UNKNOWN INDICATION
     Dosage: NOT THE PRESCRIBED AMOUNT
     Route: 048
  2. HYDROXYCHLOROQUINE [Suspect]
     Dosage: NOT THE PRESCRIBED AMOUNT
     Route: 048
  3. METFORMIN 500 MG [Suspect]
     Indication: PRODUCT USED FOR UNKNOWN INDICATION
     Dosage: NOT THE PRESCRIBED AMOUNT
     Route: 048
  4. ACETAMINOPHEN W/DIPHENHYDRAMINE HYDROCHLORIDE [Suspect]
     Dosage: NOT THE PRESCRIBED AMOUNT
     Route: 048
  5. COCAINE [Suspect]
  6. ALPRAZOLAM [Suspect]
     Indication: PRODUCT USED FOR UNKNOWN INDICATION
     Dosage: NOT THE PRESCRIBED AMOUNT
     Route: 048
  7. PREGABALIN [Suspect]
     Indication: PRODUCT USED FOR UNKNOWN INDICATION
     Dosage: NOT THE PRESCRIBED AMOUNT
     Route: 048

REACTIONS (11)
  - Completed suicide [None]
  - Overdose [None]
  - Unresponsive to stimuli [None]
  - Bradycardia [None]
  - Respiratory rate decreased [None]
  - Hypotension [None]
  - Pupil fixed [None]
  - Aspiration [None]
  - Bundle branch block left [None]
  - Haemodialysis [None]
  - Toxicity to various agents [None]
